FAERS Safety Report 4900350-6 (Version None)
Quarter: 2006Q1

REPORT INFORMATION
  Report Type: 
  Country: None (occurrence: None)
  Receive Date: 20060203
  Receipt Date: 20060126
  Transmission Date: 20060701
  Serious: Yes (Hospitalization)
  Sender: FDA-Public Use
  Company Number: FR-GLAXOSMITHKLINE-B0408727A

PATIENT
  Age: 34 Year
  Sex: Male
  Weight: 63 kg

DRUGS (3)
  1. AUGMENTIN '125' [Suspect]
     Indication: TOOTH EXTRACTION
     Dosage: 500MG TWICE PER DAY
     Route: 048
     Dates: start: 20051203, end: 20051205
  2. BIRODOGYL [Suspect]
     Indication: TOOTH EXTRACTION
     Dosage: 1UNIT TWICE PER DAY
     Route: 048
     Dates: start: 20051201, end: 20051203
  3. PROFENID LP [Suspect]
     Indication: TOOTH EXTRACTION
     Dosage: 200MG PER DAY
     Route: 048
     Dates: start: 20051201, end: 20051205

REACTIONS (8)
  - CHILLS [None]
  - DERMATITIS EXFOLIATIVE [None]
  - FACE OEDEMA [None]
  - PHARYNGOLARYNGEAL PAIN [None]
  - PRURITUS [None]
  - PYREXIA [None]
  - RASH PUSTULAR [None]
  - TOXIC SKIN ERUPTION [None]
